FAERS Safety Report 9835262 (Version 2)
Quarter: 2014Q2

REPORT INFORMATION
  Report Type: Spontaneous
  Country: US (occurrence: US)
  Receive Date: 20140122
  Receipt Date: 20140424
  Transmission Date: 20141212
  Serious: No
  Sender: FDA-Public Use
  Company Number: US-BRISTOL-MYERS SQUIBB COMPANY-19905058

PATIENT
  Age: 76 Year
  Sex: Female
  Weight: 68.93 kg

DRUGS (12)
  1. ELIQUIS [Suspect]
     Indication: ATRIAL FIBRILLATION
     Route: 048
     Dates: start: 20131118, end: 20131218
  2. PLAVIX [Concomitant]
  3. LISINOPRIL [Concomitant]
  4. ADVAIR [Concomitant]
     Dosage: 1DF-1 PUFF
     Route: 055
  5. ALBUTEROL [Concomitant]
     Route: 055
  6. CARDIZEM [Concomitant]
  7. LASIX [Concomitant]
     Dosage: TAB
     Route: 048
  8. ASPIRIN [Concomitant]
     Route: 048
  9. CARDIZEM [Concomitant]
     Route: 048
  10. DIGOXIN [Concomitant]
     Route: 048
  11. PLAVIX [Concomitant]
     Route: 048
  12. VITAMIN D3 [Concomitant]
     Dosage: 1DF- 1TAB
     Route: 048

REACTIONS (6)
  - Swelling face [Recovered/Resolved]
  - Cough [Recovered/Resolved]
  - Dizziness [Recovered/Resolved]
  - Dyspnoea [Recovered/Resolved]
  - Epistaxis [Recovered/Resolved]
  - Drug intolerance [Unknown]
